FAERS Safety Report 18374515 (Version 1)
Quarter: 2020Q4

REPORT INFORMATION
  Report Type: Not Available
  Country: US (occurrence: US)
  Receive Date: 20201013
  Receipt Date: 20201013
  Transmission Date: 20210114
  Serious: No
  Sender: FDA-Public Use
  Company Number: US-NEUROCRINE BIOSCIENCES INC.-2020NBI03592

PATIENT
  Age: 73 Year
  Sex: Male

DRUGS (4)
  1. INGREZZA [Suspect]
     Active Substance: VALBENAZINE
     Indication: TARDIVE DYSKINESIA
     Route: 048
     Dates: start: 20200821, end: 20200828
  2. INGREZZA [Suspect]
     Active Substance: VALBENAZINE
     Dosage: EVERY OTHER DAY
     Route: 048
     Dates: start: 2020
  3. INGREZZA [Suspect]
     Active Substance: VALBENAZINE
     Dosage: EVERY OTHER DAY
     Route: 048
     Dates: start: 2020
  4. INGREZZA [Suspect]
     Active Substance: VALBENAZINE
     Route: 048
     Dates: start: 20200829

REACTIONS (2)
  - Tremor [Unknown]
  - Somnolence [Unknown]

NARRATIVE: CASE EVENT DATE: 202009
